FAERS Safety Report 4693868-5 (Version None)
Quarter: 2005Q2

REPORT INFORMATION
  Report Type: 
  Country: None (occurrence: None)
  Receive Date: 20050615
  Receipt Date: 20050602
  Transmission Date: 20051028
  Serious: Yes (Other)
  Sender: FDA-Public Use
  Company Number: 2005-01212

PATIENT
  Age: 47 Year
  Sex: Female
  Weight: 81.6 kg

DRUGS (7)
  1. VELCADE [Suspect]
     Indication: MULTIPLE MYELOMA
     Dosage: 1.30 MG/M2, 2/WEEK, INTRAVENOUS
     Route: 042
     Dates: start: 20050503
  2. PAXIL [Concomitant]
  3. MULTIVITAMIN [Concomitant]
  4. PREMARIN [Concomitant]
  5. SYNTHROID [Concomitant]
  6. CALCIUM + MULTIVITAMIN + VITAMIN D [Concomitant]
  7. ZOMETA [Concomitant]

REACTIONS (4)
  - CHEST PAIN [None]
  - FATIGUE [None]
  - GASTROOESOPHAGEAL REFLUX DISEASE [None]
  - PALPITATIONS [None]
